FAERS Safety Report 14174144 (Version 1)
Quarter: 2017Q4

REPORT INFORMATION
  Report Type: Spontaneous
  Country: ES (occurrence: ES)
  Receive Date: 20171109
  Receipt Date: 20171109
  Transmission Date: 20180321
  Serious: Yes (Other)
  Sender: FDA-Public Use
  Company Number: ES-GLAXOSMITHKLINE-ES2017168275

PATIENT
  Age: 64 Year
  Sex: Male

DRUGS (4)
  1. RIVASTIGMINE. [Interacting]
     Active Substance: RIVASTIGMINE
     Indication: PRODUCT USED FOR UNKNOWN INDICATION
     Dosage: 4.5 MG, SINGLE
     Route: 065
     Dates: start: 20171024, end: 20171024
  2. DUODART [Suspect]
     Active Substance: DUTASTERIDE\TAMSULOSIN
     Indication: PRODUCT USED FOR UNKNOWN INDICATION
     Dosage: 30 CAPSULES
     Route: 048
     Dates: start: 20171024, end: 20171024
  3. QUETIAPINE. [Interacting]
     Active Substance: QUETIAPINE
     Indication: PRODUCT USED FOR UNKNOWN INDICATION
     Dosage: 60
     Route: 048
     Dates: start: 20171024, end: 20171024
  4. PRAVASTATIN. [Interacting]
     Active Substance: PRAVASTATIN
     Route: 048
     Dates: start: 20171024, end: 20171024

REACTIONS (4)
  - Dizziness [Recovered/Resolved]
  - Hypotension [Recovered/Resolved]
  - Drug interaction [Unknown]
  - Wrong patient received medication [Recovered/Resolved]

NARRATIVE: CASE EVENT DATE: 20171024
